FAERS Safety Report 21049188 (Version 1)
Quarter: 2022Q3

REPORT INFORMATION
  Report Type: Spontaneous
  Country: US (occurrence: None)
  Receive Date: 20220706
  Receipt Date: 20220706
  Transmission Date: 20221027
  Serious: Yes (Death)
  Sender: FDA-Public Use
  Company Number: None

PATIENT
  Sex: Female

DRUGS (2)
  1. ZELBORAF [Suspect]
     Active Substance: VEMURAFENIB
     Indication: Bladder cancer
     Dosage: RX2: TAKE 3 TABLETS BY MOUTH TWICE DAILY?
     Route: 048
     Dates: start: 20220409
  2. COTELLIC [Concomitant]
     Active Substance: COBIMETINIB

REACTIONS (1)
  - Death [None]
